FAERS Safety Report 19513080 (Version 1)
Quarter: 2021Q3

REPORT INFORMATION
  Report Type: Spontaneous
  Country: NL (occurrence: NL)
  Receive Date: 20210709
  Receipt Date: 20210709
  Transmission Date: 20211014
  Serious: Yes (Death, Life-Threatening, Hospitalization, Other)
  Sender: FDA-Public Use
  Company Number: NL-TEVA-2021-NL-1930165

PATIENT
  Age: 30 Year
  Sex: Female
  Weight: 90 kg

DRUGS (10)
  1. CICLOPIROX CREME 10MG/G / LOPROX HYDROFIELE CREME 10MG/G [Concomitant]
     Dosage: THERAPY START DATE ASKU, THERAPY END DATE ASKU, 10 MG/G
  2. ETHINYLESTRADIOL/LEVONORGESTREL TABLET 30/150UG / BRAND NAME NOT SPECI [Suspect]
     Active Substance: ETHINYL ESTRADIOL\LEVONORGESTREL
     Indication: MENSTRUAL DISORDER
     Dosage: 1 DOSAGE FORMS DAILY;
     Dates: start: 2007, end: 20210611
  3. MICONAZOL CREME 20MG/G / BRAND NAME NOT SPECIFIED [Concomitant]
     Dosage: THERAPY START DATE ASKU, THERAPY END DATE ASKU, 20 MG/G
  4. SPIRONOLACTON TABLET 12,5MG / BRAND NAME NOT SPECIFIED [Concomitant]
     Active Substance: SPIRONOLACTONE
     Dosage: THERAPY START DATE ASKU, THERAPY END DATE ASKU, 12,5 MG
  5. TACROLIMUS ZALF 1MG/G / PROTOPIC ZALF 1MG/G [Concomitant]
     Dosage: 1 MG/G, THERAPY START DATE ASKU, THERAPY END DATE ASKU
  6. COLECALCIFEROL CAPSULE   5600IE / BRAND NAME NOT SPECIFIED [Concomitant]
     Active Substance: CHOLECALCIFEROL
     Dosage: THERAPY START DATE ASKU, THERAPY END DATE ASKU, 5600 UNITS
  7. DOMPERIDON TABLET 10MG / BRAND NAME NOT SPECIFIED [Concomitant]
     Active Substance: DOMPERIDONE
     Dosage: THERAPY START DATE ASKU, THERAPY END DATE ASKU, 10 MG
  8. LEVOTHYROXINE TABLET  50UG (NATRIUM) / EUTHYROX TABLET  50MCG [Concomitant]
     Dosage: THERAPY START DATE ASKU, THERAPY END DATE ASKU, 50 UG
  9. MACROGOL/ZOUTEN PDR V DRANK (MOVIC/MOLAX/LAXT/GEN) / BRAND NAME NOT SP [Concomitant]
     Dosage: POWDER FOR DRINK,THERAPY START DATE ASKU, THERAPY END DATE ASKU
  10. NITROFURANTOINE CAPSULE   50MG / BRAND NAME NOT SPECIFIED [Concomitant]
     Active Substance: NITROFURANTOIN
     Dosage: THERAPY START DATE ASKU, THERAPY END DATE ASKU, 50 MG

REACTIONS (2)
  - Venous thrombosis [Fatal]
  - Intestinal ischaemia [Fatal]

NARRATIVE: CASE EVENT DATE: 20210604
